FAERS Safety Report 21585353 (Version 1)
Quarter: 2022Q4

REPORT INFORMATION
  Report Type: Spontaneous
  Country: US (occurrence: US)
  Receive Date: 20221111
  Receipt Date: 20221111
  Transmission Date: 20230112
  Serious: No
  Sender: FDA-Public Use
  Company Number: US-NOVOPROD-887271

PATIENT
  Sex: Female

DRUGS (2)
  1. TRESIBA [Suspect]
     Active Substance: INSULIN DEGLUDEC
     Indication: Product used for unknown indication
     Dosage: 10 IU, QD(BEDTIME)
     Route: 058
     Dates: start: 20220122
  2. TRESIBA [Suspect]
     Active Substance: INSULIN DEGLUDEC
     Dosage: DOSE INCREASED
     Route: 058

REACTIONS (3)
  - Visual impairment [Unknown]
  - Blood glucose increased [Unknown]
  - Product communication issue [Unknown]
